FAERS Safety Report 8583345-3 (Version None)
Quarter: 2012Q3

REPORT INFORMATION
  Report Type: 
  Country: None (occurrence: None)
  Receive Date: 20120809
  Receipt Date: 20120801
  Transmission Date: 20120928
  Serious: Yes (Hospitalization, Other)
  Sender: FDA-Public Use
  Company Number: US-ABBOTT-12P-163-0918903-00

PATIENT
  Sex: Female

DRUGS (9)
  1. HUMIRA [Suspect]
  2. HUMIRA [Suspect]
     Dosage: (80MG)
     Dates: start: 20120310, end: 20120310
  3. HUMIRA [Suspect]
     Indication: CROHN'S DISEASE
     Dosage: (160MG LOADING DOSE)
     Dates: start: 20120225, end: 20120225
  4. VICODIN [Suspect]
     Indication: RIB FRACTURE
  5. VICODIN [Suspect]
     Indication: PAIN
     Dates: start: 20120730
  6. METHOTREXATE [Concomitant]
     Indication: CROHN'S DISEASE
  7. SYNTHROID [Concomitant]
     Indication: PRODUCT USED FOR UNKNOWN INDICATION
  8. CELEXA [Concomitant]
     Indication: ANXIETY
     Dosage: DAILY
  9. HUMIRA [Suspect]

REACTIONS (10)
  - INJECTION SITE PAIN [None]
  - RIB FRACTURE [None]
  - GASTROINTESTINAL INFECTION [None]
  - SOMNOLENCE [None]
  - HERNIA [None]
  - GASTROINTESTINAL INFLAMMATION [None]
  - VIRAL DIARRHOEA [None]
  - PAIN [None]
  - ANXIETY [None]
  - AFFECT LABILITY [None]
